FAERS Safety Report 5663285-X (Version None)
Quarter: 2008Q1

REPORT INFORMATION
  Report Type: 
  Country: None (occurrence: None)
  Receive Date: 20080313
  Receipt Date: 20080306
  Transmission Date: 20080703
  Serious: Yes (Hospitalization)
  Sender: FDA-Public Use
  Company Number: US-GENENTECH-256970

PATIENT
  Sex: Male
  Weight: 67 kg

DRUGS (4)
  1. BEVACIZUMAB [Suspect]
     Indication: NASOPHARYNGEAL CANCER
     Dosage: 15 MG/KG, UNK
     Route: 042
     Dates: start: 20080112
  2. CISPLATIN [Suspect]
     Indication: NASOPHARYNGEAL CANCER
     Dosage: 100 MG/KG, UNK
     Route: 042
     Dates: start: 20080112
  3. CISPLATIN [Suspect]
     Dosage: 139 MG, UNK
     Route: 042
     Dates: start: 20080227
  4. RADIATION THERAPY [Suspect]
     Indication: NASOPHARYNGEAL CANCER

REACTIONS (2)
  - HYPERTENSION [None]
  - MUCOSAL INFLAMMATION [None]
